FAERS Safety Report 6157642-5 (Version None)
Quarter: 2009Q2

REPORT INFORMATION
  Report Type: 
  Country: None (occurrence: None)
  Receive Date: 20090414
  Receipt Date: 20090414
  Transmission Date: 20091009
  Serious: No
  Sender: FDA-Public Use
  Company Number: None

PATIENT
  Age: 31 Year
  Sex: Female
  Weight: 58.9676 kg

DRUGS (2)
  1. ABILIFY [Suspect]
     Indication: ANXIETY
     Dosage: 1 MG DAILY PO
     Route: 048
     Dates: start: 20090227, end: 20090408
  2. ABILIFY [Suspect]
     Indication: MAJOR DEPRESSION
     Dosage: 1 MG DAILY PO
     Route: 048
     Dates: start: 20090227, end: 20090408

REACTIONS (12)
  - DEPRESSION [None]
  - DIABETES MELLITUS [None]
  - DIZZINESS POSTURAL [None]
  - DRUG WITHDRAWAL SYNDROME [None]
  - FEAR [None]
  - HEADACHE [None]
  - NIGHT SWEATS [None]
  - NIGHTMARE [None]
  - PALPITATIONS [None]
  - PANIC ATTACK [None]
  - SUICIDAL IDEATION [None]
  - TREMOR [None]
